FAERS Safety Report 19829608 (Version 1)
Quarter: 2021Q3

REPORT INFORMATION
  Report Type: Spontaneous
  Country: NL (occurrence: NL)
  Receive Date: 20210914
  Receipt Date: 20210914
  Transmission Date: 20211014
  Serious: Yes (Other)
  Sender: FDA-Public Use
  Company Number: NL-MYLANLABS-2021M1062438

PATIENT
  Age: 51 Month
  Sex: Male

DRUGS (16)
  1. ISOTRETINOIN. [Suspect]
     Active Substance: ISOTRETINOIN
     Dosage: 160 MILLIGRAM/SQ. METER, 160 MG/M2, OD ON 14 CONSECUTIVE DAYS
     Route: 065
  2. ISOTRETINOIN. [Suspect]
     Active Substance: ISOTRETINOIN
     Dosage: 160 MILLIGRAM/SQ. METER, 160 MG/M2, OD ON 14 CONSECUTIVE DAYS
     Route: 065
  3. QARZIBA [Suspect]
     Active Substance: DINUTUXIMAB BETA
     Dosage: 20 MILLIGRAM/SQ. METER, Q8H, (MAX 16 HOURS) ON 5 CONSECUTIVE DAYS
     Route: 042
  4. SARGRAMOSTIM [Suspect]
     Active Substance: SARGRAMOSTIM
     Dosage: 250 MICROGRAM/SQ. METER (OD ON 14 CONSECUTIVE DAYS BY SUBCUTANEOUS ROUTE
     Route: 058
  5. ISOTRETINOIN. [Suspect]
     Active Substance: ISOTRETINOIN
     Dosage: 160 MILLIGRAM/SQ. METER, 160 MG/M2, OD ON 14 CONSECUTIVE DAYS
     Route: 065
  6. ISOTRETINOIN. [Suspect]
     Active Substance: ISOTRETINOIN
     Dosage: 160 MILLIGRAM/SQ. METER, 160 MG/M2, OD ON 14 CONSECUTIVE DAYS
     Route: 065
  7. QARZIBA [Suspect]
     Active Substance: DINUTUXIMAB BETA
     Indication: NEUROBLASTOMA
     Dosage: 20 MILLIGRAM/SQ. METER, Q8H, (MAX 16 HOURS) ON 5 CONSECUTIVE DAYS
     Route: 042
  8. QARZIBA [Suspect]
     Active Substance: DINUTUXIMAB BETA
     Dosage: 20 MILLIGRAM/SQ. METER, Q8H, (MAX 16 HOURS) ON 5 CONSECUTIVE DAYS
     Route: 042
  9. QARZIBA [Suspect]
     Active Substance: DINUTUXIMAB BETA
     Dosage: 20 MILLIGRAM/SQ. METER, Q8H, (MAX 16 HOURS) ON 5 CONSECUTIVE DAYS
     Route: 042
  10. SARGRAMOSTIM [Suspect]
     Active Substance: SARGRAMOSTIM
     Indication: NEUROBLASTOMA
     Dosage: 250 MICROGRAM/SQ. METER  (OD ON 14 CONSECUTIVE DAYS BY SUBCUTANEOUS ROUTE
     Route: 058
  11. INTERLEUKIN?2 [Suspect]
     Active Substance: ALDESLEUKIN
     Indication: NEUROBLASTOMA
     Dosage: 4.5 X 10 6 IU/M2/DAY ON 5 CONSECUTIVE DAYS BY INTRAVENOUS (IV) CONTINUOUS INFUSION
     Route: 042
  12. INTERLEUKIN?2 [Suspect]
     Active Substance: ALDESLEUKIN
     Dosage: 3.0 X 10 6 IU/M2/DAY ON 4 CONSECUTIVE DAYS BY IV CONTINUOUS INFUSION
     Route: 042
  13. SARGRAMOSTIM [Suspect]
     Active Substance: SARGRAMOSTIM
     Dosage: 250 MICROGRAM/SQ. METER OD ON 14 CONSECUTIVE DAYS BY SUBCUTANEOUS ROUTE
     Route: 058
  14. ISOTRETINOIN. [Suspect]
     Active Substance: ISOTRETINOIN
     Indication: NEUROBLASTOMA
     Dosage: 160 MILLIGRAM/SQ. METER, 160 MG/M2, OD ON 14 CONSECUTIVE DAYS
     Route: 065
  15. ISOTRETINOIN. [Suspect]
     Active Substance: ISOTRETINOIN
     Dosage: 160 MILLIGRAM/SQ. METER, 160 MG/M2, OD ON 14 CONSECUTIVE DAYS
     Route: 065
  16. QARZIBA [Suspect]
     Active Substance: DINUTUXIMAB BETA
     Dosage: 20 MILLIGRAM/SQ. METER, Q8H, (MAX 16 HOURS) ON 5 CONSECUTIVE DAYS
     Route: 042

REACTIONS (5)
  - Aspartate aminotransferase abnormal [Unknown]
  - Pain [Unknown]
  - Alanine aminotransferase abnormal [Unknown]
  - Device related bacteraemia [Unknown]
  - Pyrexia [Unknown]
